FAERS Safety Report 4797350-6 (Version None)
Quarter: 2005Q4

REPORT INFORMATION
  Report Type: 
  Country: None (occurrence: None)
  Receive Date: 20051013
  Receipt Date: 20051003
  Transmission Date: 20060501
  Serious: Yes (Other)
  Sender: FDA-Public Use
  Company Number: US-JNJFOC-20051001187

PATIENT
  Sex: Female
  Weight: 88.45 kg

DRUGS (5)
  1. DURAGESIC-100 [Suspect]
     Route: 062
     Dates: start: 20040101
  2. DURAGESIC-100 [Suspect]
     Route: 062
     Dates: start: 20040101
  3. CLONAZEPAM [Concomitant]
     Indication: DEPRESSION
     Route: 048
     Dates: start: 20030101
  4. ESTRATEST [Concomitant]
     Route: 048
  5. ESTRATEST [Concomitant]
     Route: 048

REACTIONS (5)
  - DEPRESSION [None]
  - DRUG EFFECT DECREASED [None]
  - FATIGUE [None]
  - HYPERHIDROSIS [None]
  - WEIGHT INCREASED [None]
